FAERS Safety Report 6547740-6 (Version None)
Quarter: 2010Q1

REPORT INFORMATION
  Report Type: 
  Country: None (occurrence: None)
  Receive Date: 20100123
  Receipt Date: 20100119
  Transmission Date: 20100710
  Serious: Yes (Death, Other)
  Sender: FDA-Public Use
  Company Number: FR-JNJFOC-20100107137

PATIENT
  Age: 29 Year
  Sex: Male

DRUGS (4)
  1. RISPERDAL CONSTA [Suspect]
     Indication: SCHIZOPHRENIA
     Route: 065
     Dates: start: 20081201
  2. RISPERDAL CONSTA [Suspect]
     Route: 065
     Dates: start: 20081201
  3. RISPERDAL CONSTA [Suspect]
     Route: 065
     Dates: start: 20081201
  4. RISPERDAL [Suspect]
     Indication: SCHIZOPHRENIA
     Route: 048
     Dates: start: 20081201

REACTIONS (3)
  - DEATH [None]
  - DRUG INEFFECTIVE [None]
  - OVERDOSE [None]
